FAERS Safety Report 14164498 (Version 1)
Quarter: 2017Q4

REPORT INFORMATION
  Report Type: Spontaneous
  Country: US (occurrence: US)
  Receive Date: 20171107
  Receipt Date: 20171107
  Transmission Date: 20180321
  Serious: No
  Sender: FDA-Public Use
  Company Number: US-LUPIN PHARMACEUTICALS INC.-2017-03465

PATIENT
  Sex: Female

DRUGS (1)
  1. LISINOPRIL TABLETS [Suspect]
     Active Substance: LISINOPRIL
     Indication: PRODUCT USED FOR UNKNOWN INDICATION
     Dosage: ONE TABLET IN THE MORNING AND 1/2 TABLET IN THE EVENING
     Route: 065

REACTIONS (3)
  - Blood pressure increased [Unknown]
  - Dyspnoea [Unknown]
  - Drug ineffective [Unknown]
